FAERS Safety Report 5214529-X (Version None)
Quarter: 2007Q1

REPORT INFORMATION
  Report Type: 
  Country: None (occurrence: None)
  Receive Date: 20070119
  Receipt Date: 20070119
  Transmission Date: 20070707
  Serious: Yes (Hospitalization)
  Sender: FDA-Public Use
  Company Number: None

PATIENT
  Sex: Female
  Weight: 70 kg

DRUGS (1)
  1. XELODA [Suspect]
     Dosage: 1650 MG
     Dates: end: 20070113

REACTIONS (5)
  - CEREBRAL INFARCTION [None]
  - CEREBRAL ISCHAEMIA [None]
  - DIARRHOEA [None]
  - NAUSEA [None]
  - VOMITING [None]
